FAERS Safety Report 5365394-1 (Version None)
Quarter: 2007Q2

REPORT INFORMATION
  Report Type: 
  Country: None (occurrence: None)
  Receive Date: 20070621
  Receipt Date: 20070608
  Transmission Date: 20071010
  Serious: Yes (Hospitalization)
  Sender: FDA-Public Use
  Company Number: US-ELI_LILLY_AND_COMPANY-US200706001831

PATIENT
  Age: 60 Year
  Sex: Male

DRUGS (1)
  1. CIALIS [Suspect]
     Dosage: 20 MG, UNK
     Dates: start: 20061201

REACTIONS (9)
  - ARTHRALGIA [None]
  - ARTHRITIS [None]
  - BLOOD GLUCOSE INCREASED [None]
  - DIABETES MELLITUS [None]
  - FLUID RETENTION [None]
  - FLUSHING [None]
  - MENISCUS LESION [None]
  - PAIN IN EXTREMITY [None]
  - THROMBOSIS [None]
